FAERS Safety Report 5369107-9 (Version None)
Quarter: 2007Q2

REPORT INFORMATION
  Report Type: 
  Country: None (occurrence: None)
  Receive Date: 20070625
  Receipt Date: 20070201
  Transmission Date: 20071010
  Serious: No
  Sender: FDA-Public Use
  Company Number: US-ASTRAZENECA-2007UW02183

PATIENT
  Age: 50 Year
  Sex: Male
  Weight: 77.1 kg

DRUGS (3)
  1. CRESTOR [Suspect]
     Route: 048
     Dates: start: 20060101, end: 20061101
  2. CRESTOR [Suspect]
     Route: 048
     Dates: start: 20061101
  3. NEXIUM [Concomitant]
     Route: 048

REACTIONS (5)
  - HYPOAESTHESIA [None]
  - MUSCLE DISORDER [None]
  - MUSCULOSKELETAL PAIN [None]
  - PARAESTHESIA [None]
  - SYNCOPE [None]
